FAERS Safety Report 14950638 (Version 1)
Quarter: 2018Q2

REPORT INFORMATION
  Report Type: Spontaneous
  Country: US (occurrence: US)
  Receive Date: 20180508
  Receipt Date: 20180508
  Transmission Date: 20180711
  Serious: No
  Sender: FDA-Public Use
  Company Number: None

PATIENT
  Age: 69 Year
  Sex: Female
  Weight: 95.25 kg

DRUGS (15)
  1. BRILINTA [Suspect]
     Active Substance: TICAGRELOR
     Indication: CATHETERISATION CARDIAC
     Dosage: 2 PILLS DAILY 1 AM + PM TWICE DAILY, MOUTH?
     Route: 048
     Dates: start: 20180206, end: 20180212
  2. RANEXA [Concomitant]
     Active Substance: RANOLAZINE
  3. JANUVIA [Concomitant]
     Active Substance: SITAGLIPTIN PHOSPHATE
  4. LOSARTEN [Concomitant]
     Active Substance: LOSARTAN
  5. BRILINTA [Suspect]
     Active Substance: TICAGRELOR
     Indication: STENT PLACEMENT
     Dosage: 2 PILLS DAILY 1 AM + PM TWICE DAILY, MOUTH?
     Route: 048
     Dates: start: 20180206, end: 20180212
  6. EFFIENT [Concomitant]
     Active Substance: PRASUGREL HYDROCHLORIDE
  7. BONIVA [Concomitant]
     Active Substance: IBANDRONATE SODIUM
  8. IMDUR [Concomitant]
     Active Substance: ISOSORBIDE MONONITRATE
  9. NITROSTAT [Concomitant]
     Active Substance: NITROGLYCERIN
  10. NEUROTIN [Concomitant]
     Active Substance: GABAPENTIN
  11. METOPROLOL SUCC. XL [Concomitant]
  12. VITAMIN D2 [Concomitant]
     Active Substance: ERGOCALCIFEROL
  13. TRAZODENE [Concomitant]
  14. HYDROCHLOROTHIAZIDE. [Concomitant]
     Active Substance: HYDROCHLOROTHIAZIDE
  15. REQUIP [Concomitant]
     Active Substance: ROPINIROLE HYDROCHLORIDE

REACTIONS (10)
  - Dyspnoea [None]
  - Malaise [None]
  - Fatigue [None]
  - Dizziness [None]
  - Balance disorder [None]
  - Asthenia [None]
  - Chest discomfort [None]
  - Nausea [None]
  - Bedridden [None]
  - Speech disorder [None]

NARRATIVE: CASE EVENT DATE: 20180207
